FAERS Safety Report 18806026 (Version 1)
Quarter: 2021Q1

REPORT INFORMATION
  Report Type: Spontaneous
  Country: US (occurrence: US)
  Receive Date: 20210128
  Receipt Date: 20210128
  Transmission Date: 20210419
  Serious: Yes (Other)
  Sender: FDA-Public Use
  Company Number: US-PURDUE-USA-2020-0200055

PATIENT
  Sex: Male

DRUGS (5)
  1. SUBUTEX [Suspect]
     Active Substance: BUPRENORPHINE HYDROCHLORIDE
     Indication: TOOTH REPAIR
     Dosage: UNK
     Route: 048
  2. SUBOXONE [Suspect]
     Active Substance: BUPRENORPHINE HYDROCHLORIDE\NALOXONE HYDROCHLORIDE
     Indication: TOOTH REPAIR
     Dosage: UNK
     Route: 048
  3. OXYIR [Suspect]
     Active Substance: OXYCODONE HYDROCHLORIDE
     Indication: TOOTH REPAIR
     Dosage: UNK
     Route: 048
  4. HYDROCODONE BITARTRATE AND ACETAMINOPHEN [Suspect]
     Active Substance: ACETAMINOPHEN\HYDROCODONE BITARTRATE
     Indication: TOOTH REPAIR
     Dosage: UNK
     Route: 048
  5. OXYCODONE/ ACETAMINOPHEN TABLETS [Suspect]
     Active Substance: ACETAMINOPHEN\OXYCODONE HYDROCHLORIDE
     Indication: TOOTH REPAIR
     Dosage: UNK
     Route: 048

REACTIONS (14)
  - Muscle atrophy [None]
  - Apathy [Unknown]
  - Blood testosterone decreased [Unknown]
  - Depression [None]
  - Cognitive disorder [Unknown]
  - Mental impairment [Unknown]
  - Atrophy [Unknown]
  - General physical condition abnormal [Unknown]
  - Visual impairment [Unknown]
  - Hormone level abnormal [Unknown]
  - Gastrointestinal disorder [Unknown]
  - Hypoacusis [Unknown]
  - Drug dependence [Unknown]
  - Nasopharyngeal surgery [Unknown]
